FAERS Safety Report 5348696-4 (Version None)
Quarter: 2007Q2

REPORT INFORMATION
  Report Type: 
  Country: None (occurrence: None)
  Receive Date: 20070605
  Receipt Date: 20070529
  Transmission Date: 20071010
  Serious: Yes (Hospitalization)
  Sender: FDA-Public Use
  Company Number: 2007BI005522

PATIENT
  Age: 59 Year
  Sex: Male

DRUGS (10)
  1. AVONEX LYOPHILIZED    MULTIPLE SCLEROSIS [Suspect]
     Indication: MULTIPLE SCLEROSIS
     Dosage: 30 UG;QW;; IM
     Route: 030
     Dates: start: 20011016, end: 20030101
  2. AVONEX [Suspect]
     Indication: MULTIPLE SCLEROSIS
     Dosage: 30 UG;QW;; IM
     Route: 030
     Dates: start: 20030101
  3. NEURONTIN [Concomitant]
  4. AMITRIPTYLINE HCL [Concomitant]
  5. ATENOLOL [Concomitant]
  6. KETOPROFEN [Concomitant]
  7. NAMENDA [Concomitant]
  8. FLOMAX [Concomitant]
  9. BACLOFEN [Concomitant]
  10. AVODART [Concomitant]

REACTIONS (1)
  - PNEUMONIA [None]
